FAERS Safety Report 10261239 (Version 4)
Quarter: 2014Q3

REPORT INFORMATION
  Report Type: Spontaneous
  Country: BR (occurrence: BR)
  Receive Date: 20140626
  Receipt Date: 20140924
  Transmission Date: 20150326
  Serious: Yes (Other)
  Sender: FDA-Public Use
  Company Number: BR-SA-2014SA057082

PATIENT
  Age: 74 Year
  Sex: Female
  Weight: 68 kg

DRUGS (10)
  1. CLIKSTAR [Concomitant]
     Active Substance: CLIKSTAR
  2. OSCAL D [Concomitant]
     Active Substance: CALCIUM CARBONATE\CHOLECALCIFEROL
     Indication: BONE DISORDER
     Dates: start: 1993
  3. ENALAPRIL MALEATE. [Concomitant]
     Active Substance: ENALAPRIL MALEATE
     Indication: BLOOD PRESSURE
     Dates: start: 1998
  4. LANTUS [Suspect]
     Active Substance: INSULIN GLARGINE
     Indication: TYPE 2 DIABETES MELLITUS
     Route: 065
     Dates: start: 2012
  5. GLIFAGE [Concomitant]
     Active Substance: METFORMIN HYDROCHLORIDE
     Indication: BLOOD GLUCOSE INCREASED
     Dates: start: 2003
  6. ATORVASTATIN [Concomitant]
     Active Substance: ATORVASTATIN
     Indication: BLOOD CHOLESTEROL
     Dates: start: 1999
  7. CARDIAC THERAPY [Concomitant]
     Active Substance: UNSPECIFIED INGREDIENT
     Indication: HEART RATE IRREGULAR
  8. JANUMET [Concomitant]
     Active Substance: METFORMIN HYDROCHLORIDE\SITAGLIPTIN PHOSPHATE
     Indication: BLOOD GLUCOSE INCREASED
     Dates: start: 1999
  9. FISH OIL [Concomitant]
     Active Substance: FISH OIL
     Indication: ASTHENIA
  10. GLICLAZIDE [Concomitant]
     Active Substance: GLICLAZIDE
     Indication: BLOOD GLUCOSE INCREASED
     Dates: start: 2008

REACTIONS (13)
  - Exostosis [Recovering/Resolving]
  - Oropharyngeal pain [Recovered/Resolved]
  - Weight increased [Recovered/Resolved]
  - Muscular weakness [Unknown]
  - Dysphonia [Unknown]
  - Urinary tract infection [Recovered/Resolved]
  - Gait disturbance [Recovering/Resolving]
  - Arthropathy [Unknown]
  - Blood glucose increased [Recovered/Resolved]
  - Thyroid neoplasm [Not Recovered/Not Resolved]
  - Choking sensation [Not Recovered/Not Resolved]
  - Burning sensation [Not Recovered/Not Resolved]
  - Dizziness [Recovered/Resolved]

NARRATIVE: CASE EVENT DATE: 201310
